FAERS Safety Report 14113424 (Version 1)
Quarter: 2017Q4

REPORT INFORMATION
  Report Type: Spontaneous
  Country: US (occurrence: US)
  Receive Date: 20171023
  Receipt Date: 20171023
  Transmission Date: 20180321
  Serious: No
  Sender: FDA-Public Use
  Company Number: US-TEVA-782560ACC

PATIENT
  Sex: Female

DRUGS (1)
  1. ACETAMINOPHEN W/OXYCODONE [Suspect]
     Active Substance: ACETAMINOPHEN\OXYCODONE HYDROCHLORIDE
     Indication: PAIN
     Dosage: 325MG AND 10MG

REACTIONS (12)
  - Vomiting [Unknown]
  - Product label confusion [Unknown]
  - Nausea [Unknown]
  - Abdominal pain upper [Unknown]
  - Chest discomfort [Unknown]
  - Influenza like illness [Unknown]
  - Malaise [Unknown]
  - Reaction to excipient [Unknown]
  - Dyspnoea [Unknown]
  - Headache [Unknown]
  - Drug ineffective [Unknown]
  - Dizziness [Unknown]
